FAERS Safety Report 16255252 (Version 1)
Quarter: 2019Q2

REPORT INFORMATION
  Report Type: Report from Study
  Country: CO (occurrence: CO)
  Receive Date: 20190430
  Receipt Date: 20190430
  Transmission Date: 20190711
  Serious: Yes (Hospitalization)
  Sender: FDA-Public Use
  Company Number: CO-ASTELLAS-2018US039003

PATIENT
  Age: 51 Year
  Sex: Female

DRUGS (2)
  1. MYCOPHENOLATE [Concomitant]
     Active Substance: MYCOPHENOLIC ACID
     Indication: TRANSPLANT
     Dosage: 1440 MG, ONCE DAILY (4 CAPSULES OF 360 MG)
     Route: 048
     Dates: start: 20120403
  2. TACROLIMUS. [Suspect]
     Active Substance: TACROLIMUS
     Indication: RENAL TRANSPLANT
     Dosage: 8 MG, ONCE DAILY (1 CAPSULE OF 5 MG AND 3 CAPSULES OF 1 MG)
     Route: 048
     Dates: start: 20120403

REACTIONS (7)
  - Product supply issue [Unknown]
  - Renal transplant failure [Not Recovered/Not Resolved]
  - Pyrexia [Not Recovered/Not Resolved]
  - Proteinuria [Not Recovered/Not Resolved]
  - Product dose omission [Unknown]
  - Peripheral swelling [Not Recovered/Not Resolved]
  - Renal failure [Unknown]

NARRATIVE: CASE EVENT DATE: 201903
